FAERS Safety Report 9725300 (Version 1)
Quarter: 2013Q4

REPORT INFORMATION
  Report Type: Spontaneous
  Country: US (occurrence: None)
  Receive Date: 20131202
  Receipt Date: 20131202
  Transmission Date: 20140711
  Serious: Yes (Other)
  Sender: FDA-Public Use
  Company Number: None

PATIENT
  Age: 73 Year
  Sex: Male
  Weight: 53.52 kg

DRUGS (1)
  1. DOXYCYCLINE HYCLATE [Suspect]
     Indication: BACTERIAL PROSTATITIS
     Dosage: ONE CAPSULE, TWICE DAILY, TAKEN BY MOUTH
     Route: 048
     Dates: start: 20131119, end: 20131203

REACTIONS (3)
  - Dizziness [None]
  - Vomiting [None]
  - Nasopharyngitis [None]
